FAERS Safety Report 6769108-X (Version None)
Quarter: 2010Q2

REPORT INFORMATION
  Report Type: 
  Country: None (occurrence: None)
  Receive Date: 20100615
  Receipt Date: 20100608
  Transmission Date: 20101027
  Serious: Yes (Disabling, Other)
  Sender: FDA-Public Use
  Company Number: US-BAYER-201024896NA

PATIENT
  Sex: Female

DRUGS (2)
  1. YASMIN [Suspect]
     Indication: DRUG USE FOR UNKNOWN INDICATION
     Route: 048
     Dates: start: 20041201
  2. UNKNOWN DRUG [Concomitant]
     Indication: ANTICOAGULANT THERAPY

REACTIONS (5)
  - CHOLECYSTECTOMY [None]
  - GENERAL PHYSICAL CONDITION ABNORMAL [None]
  - NERVOUS SYSTEM DISORDER [None]
  - PAIN [None]
  - PORTAL VEIN THROMBOSIS [None]
